FAERS Safety Report 7942153-4 (Version None)
Quarter: 2011Q4

REPORT INFORMATION
  Report Type: 
  Country: None (occurrence: None)
  Receive Date: 20111123
  Receipt Date: 20111123
  Transmission Date: 20120403
  Serious: Yes (Disabling)
  Sender: FDA-Public Use
  Company Number: None

PATIENT
  Sex: Male
  Weight: 68.0396 kg

DRUGS (2)
  1. KALETRA [Suspect]
     Indication: INJURY ASSOCIATED WITH DEVICE
     Dosage: 200 - 50 MG 1 TAB Q DAY PO
     Route: 048
     Dates: start: 20110603, end: 20110702
  2. TRUVADA [Suspect]
     Indication: INJURY ASSOCIATED WITH DEVICE
     Dosage: 200 - 300 MG 2 TABS BID PO
     Route: 048
     Dates: start: 20110603, end: 20110702

REACTIONS (10)
  - PARAESTHESIA [None]
  - PERONEAL NERVE PALSY [None]
  - WEIGHT DECREASED [None]
  - DIARRHOEA [None]
  - GAIT DISTURBANCE [None]
  - NEUROPATHY PERIPHERAL [None]
  - FATIGUE [None]
  - NAUSEA [None]
  - LETHARGY [None]
  - BURNING SENSATION [None]
